FAERS Safety Report 10006447 (Version 2)
Quarter: 2014Q2

REPORT INFORMATION
  Report Type: Spontaneous
  Country: US (occurrence: None)
  Receive Date: 20140311
  Receipt Date: 20140411
  Transmission Date: 20141212
  Serious: Yes (Hospitalization, Disabling)
  Sender: FDA-Public Use
  Company Number: 2014DEPUS00050

PATIENT
  Age: 42 Year
  Sex: Female

DRUGS (3)
  1. HYDROCORTISONE (HYDROCORTISONE) [Suspect]
     Indication: ACUTE LYMPHOCYTIC LEUKAEMIA
     Route: 037
  2. DEPOCYT [Suspect]
     Indication: ACUTE LYMPHOCYTIC LEUKAEMIA
     Route: 037
  3. METHOTREXATE (METHOTREXATE) [Suspect]
     Indication: ACUTE LYMPHOCYTIC LEUKAEMIA
     Route: 037

REACTIONS (8)
  - Myelopathy [None]
  - Off label use [None]
  - Hypoaesthesia [None]
  - Balance disorder [None]
  - Loss of proprioception [None]
  - Decreased vibratory sense [None]
  - Muscular weakness [None]
  - Sensory loss [None]
